FAERS Safety Report 7795748-5 (Version None)
Quarter: 2011Q4

REPORT INFORMATION
  Report Type: 
  Country: None (occurrence: None)
  Receive Date: 20111004
  Receipt Date: 20111002
  Transmission Date: 20120403
  Serious: Yes (Other)
  Sender: FDA-Public Use
  Company Number: US-PFIZER INC-2011234721

PATIENT
  Sex: Female
  Weight: 70.295 kg

DRUGS (9)
  1. CHANTIX [Suspect]
     Dosage: UNK
     Dates: start: 20110401, end: 20110801
  2. CHANTIX [Suspect]
     Indication: SMOKING CESSATION THERAPY
     Dosage: UNK
     Dates: start: 20100101
  3. BUSPAR [Concomitant]
     Indication: ANXIETY
     Dosage: 10 MG, 2X/DAY
  4. MACRODANTIN [Concomitant]
     Indication: RENAL DISORDER
     Dosage: 50 MG, 3X/WEEK
     Dates: start: 20110101
  5. NAPROXEN [Concomitant]
     Indication: ARTHRALGIA
     Dosage: 500 MG, AS NEEDED
  6. EFFEXOR [Concomitant]
     Indication: ANXIETY
     Dosage: 150 MG, DAILY
  7. ATENOLOL [Concomitant]
     Indication: MITRAL VALVE PROLAPSE
     Dosage: 25 MG, DAILY
  8. ROPINIROLE [Concomitant]
     Indication: RESTLESS LEGS SYNDROME
     Dosage: 1 MG, DAILY
  9. NITROFURANTOIN [Concomitant]
     Indication: RENAL DISORDER
     Dosage: 50 MG, DAILY
     Dates: end: 20110101

REACTIONS (10)
  - HYPERTENSION [None]
  - BLOOD GLUCOSE INCREASED [None]
  - HALLUCINATION [None]
  - THINKING ABNORMAL [None]
  - TOE OPERATION [None]
  - HOT FLUSH [None]
  - ANKLE OPERATION [None]
  - FEELING COLD [None]
  - ABDOMINAL PAIN UPPER [None]
  - FEELING ABNORMAL [None]
